FAERS Safety Report 7955555-7 (Version None)
Quarter: 2011Q4

REPORT INFORMATION
  Report Type: 
  Country: None (occurrence: None)
  Receive Date: 20111202
  Receipt Date: 20111130
  Transmission Date: 20120403
  Serious: Yes (Hospitalization, Other)
  Sender: FDA-Public Use
  Company Number: US-ROCHE-786749

PATIENT
  Sex: Male
  Weight: 54.4 kg

DRUGS (2)
  1. RETIN-A [Concomitant]
  2. ACCUTANE [Suspect]
     Indication: ACNE
     Route: 065
     Dates: start: 19980922, end: 19990101

REACTIONS (11)
  - BLOOD CHOLESTEROL INCREASED [None]
  - LARGE INTESTINAL ULCER [None]
  - INJURY [None]
  - INFLAMMATORY BOWEL DISEASE [None]
  - COLONIC STENOSIS [None]
  - COLITIS ULCERATIVE [None]
  - CROHN'S DISEASE [None]
  - INTESTINAL HAEMORRHAGE [None]
  - INTESTINAL FISTULA [None]
  - INTESTINAL OBSTRUCTION [None]
  - DEPRESSION [None]
